FAERS Safety Report 17298332 (Version 2)
Quarter: 2020Q1

REPORT INFORMATION
  Report Type: Spontaneous
  Country: US (occurrence: US)
  Receive Date: 20200122
  Receipt Date: 20200128
  Transmission Date: 20200409
  Serious: Yes (Hospitalization, Other)
  Sender: FDA-Public Use
  Company Number: US-VISTAPHARM, INC.-VER202001-000104

PATIENT
  Age: 42 Year
  Sex: Female

DRUGS (2)
  1. HYDROCODONE AND ACETAMINOPHEN [Suspect]
     Active Substance: ACETAMINOPHEN\HYDROCODONE
     Indication: PAIN
     Dosage: UNKNOWN
  2. PHYTONADIONE. [Concomitant]
     Active Substance: PHYTONADIONE
     Indication: INTERNATIONAL NORMALISED RATIO ABNORMAL
     Dosage: 5 MG
     Route: 042

REACTIONS (5)
  - Brain oedema [Unknown]
  - Hypotension [Unknown]
  - Acute hepatic failure [Unknown]
  - Intracranial pressure increased [Unknown]
  - Toxicity to various agents [Unknown]
